FAERS Safety Report 9757206 (Version 2)
Quarter: 2014Q1

REPORT INFORMATION
  Report Type: Report from Study
  Country: US (occurrence: US)
  Receive Date: 20131213
  Receipt Date: 20140207
  Transmission Date: 20141002
  Serious: Yes (Death, Other)
  Sender: FDA-Public Use
  Company Number: US-ABBVIE-13P-163-1178613-00

PATIENT
  Age: 60 Year
  Sex: Male

DRUGS (1)
  1. HUMIRA [Suspect]
     Indication: SURGERY
     Route: 058
     Dates: start: 20130128

REACTIONS (3)
  - Embolism [Fatal]
  - Pelvic venous thrombosis [Unknown]
  - Abdominal adhesions [Unknown]
